FAERS Safety Report 10745238 (Version 1)
Quarter: 2015Q1

REPORT INFORMATION
  Report Type: Spontaneous
  Country: US (occurrence: None)
  Receive Date: 20150127
  Receipt Date: 20150127
  Transmission Date: 20150721
  Serious: Yes (Death)
  Sender: FDA-Public Use
  Company Number: None

PATIENT
  Age: 82 Year
  Sex: Female

DRUGS (2)
  1. EXJADE [Suspect]
     Active Substance: DEFERASIROX
     Route: 048
     Dates: end: 20141125
  2. EXJADE [Suspect]
     Active Substance: DEFERASIROX

REACTIONS (1)
  - Death [None]

NARRATIVE: CASE EVENT DATE: 20141125
